FAERS Safety Report 6900554-7 (Version None)
Quarter: 2010Q3

REPORT INFORMATION
  Report Type: 
  Country: None (occurrence: None)
  Receive Date: 20100803
  Receipt Date: 20100728
  Transmission Date: 20110219
  Serious: Yes (Other)
  Sender: FDA-Public Use
  Company Number: US-PFIZER INC-2010095552

PATIENT
  Sex: Female
  Weight: 81.633 kg

DRUGS (4)
  1. CELEBREX [Suspect]
     Indication: OSTEOARTHRITIS
     Dosage: UNK, 2X/DAY
     Route: 048
     Dates: start: 20000101
  2. BEXTRA [Suspect]
     Dosage: UNK
     Dates: end: 20050101
  3. TRAMADOL [Suspect]
     Dosage: UNK
  4. VIOXX [Concomitant]
     Dosage: UNK

REACTIONS (4)
  - DRUG INEFFECTIVE [None]
  - FIBROMYALGIA [None]
  - HYPERSENSITIVITY [None]
  - SYSTEMIC LUPUS ERYTHEMATOSUS [None]
